FAERS Safety Report 9153719 (Version 1)
Quarter: 2013Q1

REPORT INFORMATION
  Report Type: Spontaneous
  Country: US (occurrence: None)
  Receive Date: 20130201
  Receipt Date: 20130201
  Transmission Date: 20140127
  Serious: Yes (Other)
  Sender: FDA-Public Use
  Company Number: 1579402

PATIENT
  Age: 58 Year
  Sex: Female

DRUGS (4)
  1. CARBOPLATIN [Suspect]
     Indication: OVARIAN CANCER RECURRENT
  2. GEMCITABINE HYDROCHLORIDE [Suspect]
     Indication: OVARIAN CANCER RECURRENT
  3. LIPOSOMAL DOXORUBICIN HYDROCHLORIDE) [Suspect]
     Indication: OVARIAN CANCER RECURRENT
  4. PACLITAXEL [Concomitant]

REACTIONS (6)
  - Ovarian cancer recurrent [None]
  - Malignant neoplasm progression [None]
  - Hypertension [None]
  - Haemolysis [None]
  - Thrombocytopenia [None]
  - Renal failure chronic [None]
